FAERS Safety Report 16770783 (Version 3)
Quarter: 2019Q4

REPORT INFORMATION
  Report Type: Spontaneous
  Country: FR (occurrence: FR)
  Receive Date: 20190904
  Receipt Date: 20191001
  Transmission Date: 20200122
  Serious: Yes (Hospitalization)
  Sender: FDA-Public Use
  Company Number: FR-IPSEN BIOPHARMACEUTICALS, INC.-2019-15591

PATIENT
  Age: 62 Year
  Sex: Male
  Weight: 74 kg

DRUGS (4)
  1. GLUCOSAMINE [Concomitant]
     Active Substance: GLUCOSAMINE
     Route: 065
  2. ALENDRONATE / CHOLECALCIFEROL [Concomitant]
     Route: 065
  3. SOMATULINE L.P. 120MG [Suspect]
     Active Substance: LANREOTIDE ACETATE
     Indication: PANCREATIC NEUROENDOCRINE TUMOUR METASTATIC
     Dosage: 3 DOSAGE FORM
     Route: 058
     Dates: start: 20190612, end: 20190808
  4. BUDESONIDE / FORMOTEROL FUMARATE [Concomitant]
     Dosage: ONE INHALATION IN THE MORNING AND IN THE EVENING
     Route: 065

REACTIONS (21)
  - Vomiting [Recovered/Resolved]
  - Haptoglobin increased [Recovered/Resolved]
  - Hepatocellular injury [Recovered/Resolved]
  - Bacterial prostatitis [Recovered/Resolved]
  - Cholestasis [Recovered/Resolved]
  - Serum ferritin increased [Recovered/Resolved]
  - Sinus tachycardia [Recovered/Resolved]
  - Rhabdomyolysis [Recovered/Resolved]
  - Inflammation [Recovered/Resolved]
  - Hyperhidrosis [Recovered/Resolved]
  - Blood alkaline phosphatase increased [Recovered/Resolved]
  - Rales [Recovered/Resolved]
  - Gamma-glutamyltransferase increased [Recovered/Resolved]
  - Blood bilirubin increased [Recovered/Resolved]
  - Dependence on oxygen therapy [Recovered/Resolved]
  - Pyrexia [Recovered/Resolved]
  - Incorrect route of product administration [Unknown]
  - Blood lactate dehydrogenase increased [Recovered/Resolved]
  - Abdominal pain [Recovered/Resolved]
  - Chills [Recovered/Resolved]
  - Condition aggravated [Recovered/Resolved]

NARRATIVE: CASE EVENT DATE: 2019
